FAERS Safety Report 8683529 (Version 4)
Quarter: 2013Q1

REPORT INFORMATION
  Report Type: Spontaneous
  Country: US (occurrence: None)
  Receive Date: 20120710
  Receipt Date: 20130122
  Transmission Date: 20140127
  Serious: Yes (Death, Other)
  Sender: FDA-Public Use
  Company Number: 2012P1046018

PATIENT
  Age: 81 Year
  Sex: Female

DRUGS (9)
  1. ONDANSETRON [Suspect]
     Indication: NAUSEA
     Dosage: \
     Route: 042
     Dates: start: 20120623, end: 20120623
  2. ONDANSETRON [Suspect]
     Indication: VOMITING
     Dosage: \
     Route: 042
     Dates: start: 20120623, end: 20120623
  3. ONDANSETRON [Suspect]
     Indication: NAUSEA
     Route: 042
     Dates: start: 20120623, end: 20120623
  4. ONDANSETRON [Suspect]
     Indication: VOMITING
     Route: 042
     Dates: start: 20120623, end: 20120623
  5. TYLENOL [Concomitant]
  6. TORADOL [Concomitant]
  7. LEVAQUIN [Concomitant]
  8. FLAGYL [Concomitant]
  9. PROTONIX [Concomitant]

REACTIONS (5)
  - Endotracheal intubation [None]
  - Unresponsive to stimuli [None]
  - Bradycardia [None]
  - Respiratory failure [None]
  - Vomiting [None]
